FAERS Safety Report 22240528 (Version 6)
Quarter: 2024Q2

REPORT INFORMATION
  Report Type: Spontaneous
  Country: US (occurrence: US)
  Receive Date: 20230421
  Receipt Date: 20240429
  Transmission Date: 20240716
  Serious: No
  Sender: FDA-Public Use
  Company Number: US-SA-SAC20230421000197

PATIENT
  Age: 8 Year
  Sex: Male

DRUGS (9)
  1. DUPIXENT [Suspect]
     Active Substance: DUPILUMAB
     Indication: Dermatitis atopic
     Dosage: 200 MG, QOW
     Route: 058
     Dates: start: 20230523
  2. ALBUTEROL SULFATE [Concomitant]
     Active Substance: ALBUTEROL SULFATE
     Dosage: UNK
  3. CLOBETASOL [Concomitant]
     Active Substance: CLOBETASOL
     Dosage: UNK
  4. OMEPRAZOLE [Concomitant]
     Active Substance: OMEPRAZOLE
     Dosage: UNK
  5. SINGULAIR [Concomitant]
     Active Substance: MONTELUKAST SODIUM
     Dosage: UNK
  6. SPIRIVA [Concomitant]
     Active Substance: TIOTROPIUM BROMIDE MONOHYDRATE
     Dosage: UNK
  7. MOMETASONE [Concomitant]
     Active Substance: MOMETASONE
     Dosage: UNK
  8. AMOXICILLIN [Concomitant]
     Active Substance: AMOXICILLIN
  9. BUDESONIDE [Concomitant]
     Active Substance: BUDESONIDE

REACTIONS (8)
  - Sleep disorder [Unknown]
  - Discomfort [Not Recovered/Not Resolved]
  - Ear infection [Unknown]
  - Sleep disorder due to a general medical condition [Unknown]
  - Pruritus [Recovering/Resolving]
  - Rash [Not Recovered/Not Resolved]
  - Dermatitis atopic [Not Recovered/Not Resolved]
  - Drug ineffective [Unknown]

NARRATIVE: CASE EVENT DATE: 20230101
